FAERS Safety Report 6496114-5 (Version None)
Quarter: 2009Q4

REPORT INFORMATION
  Report Type: 
  Country: None (occurrence: None)
  Receive Date: 20091214
  Receipt Date: 20090929
  Transmission Date: 20100525
  Serious: No
  Sender: FDA-Public Use
  Company Number: US-BRISTOL-MYERS SQUIBB COMPANY-14801633

PATIENT
  Age: 16 Year
  Sex: Male

DRUGS (3)
  1. ABILIFY [Suspect]
     Indication: AUTISM SPECTRUM DISORDER
     Dates: end: 20090101
  2. ABILIFY [Suspect]
     Indication: BIPOLAR DISORDER
     Dates: end: 20090101
  3. LITHIUM [Concomitant]

REACTIONS (1)
  - EXTRAPYRAMIDAL DISORDER [None]
